FAERS Safety Report 15613323 (Version 1)
Quarter: 2018Q4

REPORT INFORMATION
  Report Type: Spontaneous
  Country: FR (occurrence: FR)
  Receive Date: 20181113
  Receipt Date: 20181113
  Transmission Date: 20190205
  Serious: Yes (Other)
  Sender: FDA-Public Use
  Company Number: FR-TEVA-2018-FR-974617

PATIENT
  Age: 41 Year
  Sex: Female

DRUGS (4)
  1. BISOPROLOL (HEMIFUMARATE DE) [Suspect]
     Active Substance: BISOPROLOL FUMARATE
     Indication: SUICIDE ATTEMPT
     Route: 048
     Dates: start: 20171231, end: 20171231
  2. DAFALGAN CODEINE [Suspect]
     Active Substance: ACETAMINOPHEN\CODEINE PHOSPHATE
     Indication: SUICIDE ATTEMPT
     Route: 048
     Dates: start: 20171231, end: 20171231
  3. DAFALGAN [Suspect]
     Active Substance: ACETAMINOPHEN
     Indication: SUICIDE ATTEMPT
     Route: 048
     Dates: start: 20171231, end: 20171231
  4. LEVOCARNIL [Suspect]
     Active Substance: LEVOCARNITINE
     Indication: SUICIDE ATTEMPT
     Route: 048
     Dates: start: 20171231, end: 20171231

REACTIONS (4)
  - Bradycardia [Recovered/Resolved]
  - Analgesic drug level increased [Recovered/Resolved]
  - Somnolence [Recovered/Resolved]
  - Toxicity to various agents [Recovered/Resolved]

NARRATIVE: CASE EVENT DATE: 20171231
